FAERS Safety Report 17558435 (Version 2)
Quarter: 2020Q2

REPORT INFORMATION
  Report Type: Report from Study
  Country: US (occurrence: US)
  Receive Date: 20200318
  Receipt Date: 20200403
  Transmission Date: 20200713
  Serious: Yes (Death, Life-Threatening, Hospitalization)
  Sender: FDA-Public Use
  Company Number: US-CELGENEUS-USA-20200306035

PATIENT
  Age: 70 Year
  Sex: Female
  Weight: 61.8 kg

DRUGS (2)
  1. AZACITIDINE. [Suspect]
     Active Substance: AZACITIDINE
     Indication: MYELODYSPLASTIC SYNDROME
     Dosage: 123.8 MILLIGRAM
     Route: 041
     Dates: start: 20200306, end: 20200310
  2. AZACITIDINE. [Suspect]
     Active Substance: AZACITIDINE
     Indication: ACUTE MYELOID LEUKAEMIA

REACTIONS (2)
  - Mental status changes [Fatal]
  - Sepsis [Fatal]

NARRATIVE: CASE EVENT DATE: 20200309
